FAERS Safety Report 21183155 (Version 1)
Quarter: 2022Q3

REPORT INFORMATION
  Report Type: Spontaneous
  Country: US (occurrence: US)
  Receive Date: 20220808
  Receipt Date: 20220808
  Transmission Date: 20221027
  Serious: No
  Sender: FDA-Public Use
  Company Number: US-TEVA-2022-US-2061783

PATIENT
  Age: 78 Year
  Sex: Male

DRUGS (3)
  1. ALBUTEROL SULFATE [Suspect]
     Active Substance: ALBUTEROL SULFATE
     Indication: Cough
     Route: 065
  2. TYVASO [Concomitant]
     Active Substance: TREPROSTINIL
     Indication: Pulmonary arterial hypertension
     Dosage: 54 G (9 BREATHS)
     Route: 065
     Dates: start: 202012, end: 202204
  3. TYVASO [Concomitant]
     Active Substance: TREPROSTINIL
     Dosage: 18 G (3 BREATHS)
     Route: 065
     Dates: start: 20211215

REACTIONS (1)
  - Therapy non-responder [Unknown]
